FAERS Safety Report 12787084 (Version 1)
Quarter: 2016Q3

REPORT INFORMATION
  Report Type: Report from Study
  Country: AT (occurrence: AT)
  Receive Date: 20160928
  Receipt Date: 20160928
  Transmission Date: 20161109
  Serious: No
  Sender: FDA-Public Use
  Company Number: AT-TOLMAR, INC.-2009AT000901

PATIENT
  Sex: Male
  Weight: 90 kg

DRUGS (4)
  1. UROSIN                             /00003301/ [Concomitant]
  2. BICALUTAMIDE. [Suspect]
     Active Substance: BICALUTAMIDE
     Indication: ADENOCARCINOMA
     Dosage: UNK
     Route: 065
  3. ELIGARD [Suspect]
     Active Substance: LEUPROLIDE ACETATE
     Indication: ADENOCARCINOMA
     Dosage: 45 MG, UNK
     Route: 058
     Dates: start: 20090422
  4. VOLTAREN [Concomitant]
     Active Substance: DICLOFENAC SODIUM

REACTIONS (3)
  - Restlessness [Unknown]
  - Insomnia [Unknown]
  - Hot flush [Unknown]
